FAERS Safety Report 20205978 (Version 1)
Quarter: 2021Q4

REPORT INFORMATION
  Report Type: Spontaneous
  Country: US (occurrence: None)
  Receive Date: 20211217
  Receipt Date: 20211217
  Transmission Date: 20220303
  Serious: No
  Sender: FDA-Public Use
  Company Number: None

PATIENT
  Age: 25 Year
  Sex: Female
  Weight: 63.45 kg

DRUGS (2)
  1. CASIRIVIMAB\IMDEVIMAB [Suspect]
     Active Substance: CASIRIVIMAB\IMDEVIMAB
     Indication: COVID-19
     Route: 041
     Dates: start: 20211217, end: 20211217
  2. CASIRIVIMAB\IMDEVIMAB [Concomitant]
     Active Substance: CASIRIVIMAB\IMDEVIMAB
     Dates: start: 20211217, end: 20211217

REACTIONS (7)
  - Infusion related reaction [None]
  - Dyspnoea [None]
  - Dyspnoea [None]
  - Feeling hot [None]
  - Urticaria [None]
  - Flushing [None]
  - Oxygen saturation decreased [None]

NARRATIVE: CASE EVENT DATE: 20211217
